FAERS Safety Report 16105437 (Version 3)
Quarter: 2019Q2

REPORT INFORMATION
  Report Type: Report from Study
  Country: US (occurrence: US)
  Receive Date: 20190322
  Receipt Date: 20190415
  Transmission Date: 20190711
  Serious: Yes (Death)
  Sender: FDA-Public Use
  Company Number: US-PFIZER INC-2019122576

PATIENT
  Age: 52 Year
  Sex: Female
  Weight: 90.3 kg

DRUGS (17)
  1. ACETAMINOPHEN. [Concomitant]
     Active Substance: ACETAMINOPHEN
     Dosage: 500-1000 MG Q6H AS NEEDED
     Route: 048
     Dates: start: 20190129
  2. PALBOCICLIB [Suspect]
     Active Substance: PALBOCICLIB
     Indication: INVASIVE DUCTAL BREAST CARCINOMA
     Dosage: 125 MG, DAILY
     Route: 048
     Dates: start: 20190129, end: 20190314
  3. TAMOXIFEN [Suspect]
     Active Substance: TAMOXIFEN
     Indication: INVASIVE DUCTAL BREAST CARCINOMA
     Dosage: 20 MG, DAILY
     Route: 048
     Dates: start: 20190129, end: 20190314
  4. TRAZODONE HYDROCHLORIDE. [Concomitant]
     Active Substance: TRAZODONE HYDROCHLORIDE
     Dosage: 1 TAB, DAILY
     Route: 048
     Dates: start: 20190129
  5. SENOKOT [Concomitant]
     Active Substance: SENNOSIDES
     Dosage: 8.6 MG, DAILY
     Route: 048
     Dates: start: 20190129
  6. SYNTHROID [Concomitant]
     Active Substance: LEVOTHYROXINE SODIUM
     Dosage: 175 MCG, DAILY
     Route: 048
     Dates: start: 20190129
  7. LUPRON [Concomitant]
     Active Substance: LEUPROLIDE ACETATE
     Dosage: 3.75 MG, MONTHLY
     Route: 030
     Dates: end: 20190227
  8. VITAMIN B COMPLEX [Concomitant]
     Active Substance: CYANOCOBALAMIN\DEXPANTHENOL\NIACINAMIDE\PYRIDOXINE HYDROCHLORIDE\RIBOFLAVIN 5^-PHOSPHATE SODIUM\THIAMINE HYDROCHLORIDE\VITAMIN B COMPLEX
     Dosage: 1 CAPSULE, DAILY
     Route: 048
     Dates: start: 20190129
  9. GENTEAL [HYPROMELLOSE] [Concomitant]
     Dosage: 0.3% EYE DROPS, 1 DROP INTO EACH EYE THREE TIMES A DAY AS NEEDED
     Dates: start: 20190129
  10. INVEGA SUSTENNA [Concomitant]
     Active Substance: PALIPERIDONE PALMITATE
     Dosage: 234 MG/1.5 ML INJECTION EVERY 28 DAYS
     Route: 030
  11. VISTARIL [HYDROXYZINE EMBONATE] [Concomitant]
     Dosage: UNK UNK, DAILY
     Route: 048
     Dates: start: 20190129
  12. TRIAMCINOLONE [Concomitant]
     Active Substance: TRIAMCINOLONE
     Dosage: TO RIGHT HAND PRN
     Dates: start: 20190129
  13. CLOZAPINE. [Concomitant]
     Active Substance: CLOZAPINE
     Dosage: 300 MG, DAILY
     Route: 048
     Dates: start: 20190129
  14. COLACE [Concomitant]
     Active Substance: DOCUSATE SODIUM
     Dosage: 100 MG, BID
     Route: 048
     Dates: start: 20190129
  15. CALTRATE [Concomitant]
     Active Substance: CALCIUM CARBONATE
     Dosage: (600 MG CALCIUM-800 UNIT-50 MG TAB) 1 TAB, DAILY
     Route: 048
     Dates: start: 20190129
  16. DEPAKOTE [Concomitant]
     Active Substance: DIVALPROEX SODIUM
     Dosage: 1000 MG, BID
     Route: 048
     Dates: start: 20190129
  17. LEVOTHROID [Concomitant]
     Active Substance: LEVOTHYROXINE SODIUM
     Dosage: 175 UG, DAILY
     Route: 048
     Dates: start: 20190119

REACTIONS (1)
  - Cardiac arrest [Fatal]

NARRATIVE: CASE EVENT DATE: 20190315
